FAERS Safety Report 5063766-6 (Version None)
Quarter: 2006Q3

REPORT INFORMATION
  Report Type: 
  Country: None (occurrence: None)
  Receive Date: 20060724
  Receipt Date: 20060711
  Transmission Date: 20061208
  Serious: Yes (Hospitalization)
  Sender: FDA-Public Use
  Company Number: 2006087750

PATIENT
  Sex: Female

DRUGS (7)
  1. CELEBREX [Suspect]
     Indication: ARTHRALGIA
     Dosage: 400 MG (200 MG, 2 IN 1 D)
     Dates: start: 20050401
  2. ACETAMINOPHEN [Concomitant]
  3. DEMEROL [Concomitant]
  4. DARVOCET [Concomitant]
  5. CODEINE (CODEINE) [Concomitant]
  6. ASPIRIN [Concomitant]
  7. ALEVE [Concomitant]

REACTIONS (3)
  - CARDIOVASCULAR DISORDER [None]
  - CEREBROVASCULAR ACCIDENT [None]
  - CEREBROVASCULAR DISORDER [None]
